FAERS Safety Report 18832930 (Version 4)
Quarter: 2021Q3

REPORT INFORMATION
  Report Type: Spontaneous
  Country: JP (occurrence: JP)
  Receive Date: 20210201
  Receipt Date: 20210715
  Transmission Date: 20211014
  Serious: Yes (Other)
  Sender: FDA-Public Use
  Company Number: JP-BRISTOL-MYERS SQUIBB COMPANY-BMS-2021-002322

PATIENT
  Age: 67 Year
  Sex: Male

DRUGS (6)
  1. OPDIVO [Suspect]
     Active Substance: NIVOLUMAB
     Indication: NON-SMALL CELL LUNG CANCER RECURRENT
     Dosage: UNK
     Route: 041
     Dates: start: 20210106
  2. YERVOY [Suspect]
     Active Substance: IPILIMUMAB
     Indication: NON-SMALL CELL LUNG CANCER RECURRENT
     Dosage: UNK
     Route: 041
     Dates: start: 20210106
  3. PACLITAXEL. [Suspect]
     Active Substance: PACLITAXEL
     Dosage: 130 MILLIGRAM/SQ. METER, ONE TIME DOSE
     Route: 041
     Dates: start: 20210128, end: 20210128
  4. PACLITAXEL. [Suspect]
     Active Substance: PACLITAXEL
     Indication: NON-SMALL CELL LUNG CANCER RECURRENT
     Dosage: 200 MILLIGRAM/SQ. METER, ONE TIME DOSE
     Route: 041
     Dates: start: 20210106, end: 20210106
  5. CARBOPLATIN. [Suspect]
     Active Substance: CARBOPLATIN
     Indication: NON-SMALL CELL LUNG CANCER
     Dosage: AUC4.5
     Route: 041
     Dates: start: 20210106, end: 20210106
  6. CARBOPLATIN. [Suspect]
     Active Substance: CARBOPLATIN
     Dosage: AUC4
     Route: 041
     Dates: start: 20210128, end: 20210128

REACTIONS (8)
  - Neuropathy peripheral [Recovering/Resolving]
  - Pyrexia [Recovered/Resolved]
  - Neutropenia [Unknown]
  - Nausea [Recovered/Resolved]
  - Hypoaesthesia [Recovering/Resolving]
  - Hypothalamo-pituitary disorder [Unknown]
  - Febrile neutropenia [Recovered/Resolved]
  - Rash [Recovered/Resolved]

NARRATIVE: CASE EVENT DATE: 20210107
